FAERS Safety Report 5052369-5 (Version None)
Quarter: 2006Q3

REPORT INFORMATION
  Report Type: 
  Country: None (occurrence: None)
  Receive Date: 20060717
  Receipt Date: 20060706
  Transmission Date: 20061208
  Serious: Yes (Hospitalization)
  Sender: FDA-Public Use
  Company Number: 2006PK01488

PATIENT
  Age: 54 Year
  Sex: Female

DRUGS (4)
  1. SEROQUEL [Suspect]
     Indication: ACUTE PSYCHOSIS
     Route: 048
     Dates: start: 20060405, end: 20060421
  2. SOLIAN [Suspect]
     Indication: ACUTE PSYCHOSIS
     Route: 048
     Dates: start: 20060121, end: 20060422
  3. ESCITALOPRAM OXALATE [Suspect]
     Indication: ACUTE PSYCHOSIS
     Route: 048
     Dates: start: 20060201, end: 20060422
  4. EDRONAX [Suspect]
     Indication: ACUTE PSYCHOSIS
     Route: 048
     Dates: start: 20060302, end: 20060422

REACTIONS (8)
  - BLOOD CREATINE PHOSPHOKINASE INCREASED [None]
  - DRUG TOXICITY [None]
  - FALL [None]
  - MEDICATION ERROR [None]
  - MUSCLE RIGIDITY [None]
  - MYOCLONUS [None]
  - OVERDOSE [None]
  - SEROTONIN SYNDROME [None]
